FAERS Safety Report 8376911-1 (Version None)
Quarter: 2012Q2

REPORT INFORMATION
  Report Type: 
  Country: None (occurrence: None)
  Receive Date: 20120518
  Receipt Date: 20120508
  Transmission Date: 20120825
  Serious: Yes (Hospitalization)
  Sender: FDA-Public Use
  Company Number: AUR-APL-2012-02234

PATIENT
  Age: 95 Year
  Sex: Female

DRUGS (1)
  1. CIPROFLOXACIN [Suspect]
     Indication: CYSTITIS
     Dosage: 1000 MG (500 MG, 2 IN 1 D), ORAL
     Route: 048

REACTIONS (7)
  - PALLOR [None]
  - SENSATION OF FOREIGN BODY [None]
  - MELAENA [None]
  - BEDRIDDEN [None]
  - EROSIVE OESOPHAGITIS [None]
  - HAEMATEMESIS [None]
  - CHEST PAIN [None]
